FAERS Safety Report 19822028 (Version 1)
Quarter: 2021Q3

REPORT INFORMATION
  Report Type: Spontaneous
  Country: US (occurrence: US)
  Receive Date: 20210913
  Receipt Date: 20210913
  Transmission Date: 20211014
  Serious: Yes (Hospitalization)
  Sender: FDA-Public Use
  Company Number: None

PATIENT
  Age: 54 Year
  Sex: Female

DRUGS (1)
  1. ENBREL [Suspect]
     Active Substance: ETANERCEPT
     Indication: HYPOTHYROIDISM
     Dosage: ?          OTHER FREQUENCY:ONCE WEEKLY;?
     Route: 058
     Dates: start: 20210309

REACTIONS (1)
  - Cellulitis [None]

NARRATIVE: CASE EVENT DATE: 20210828
